FAERS Safety Report 5839139-2 (Version None)
Quarter: 2008Q3

REPORT INFORMATION
  Report Type: 
  Country: None (occurrence: None)
  Receive Date: 20080808
  Receipt Date: 20080728
  Transmission Date: 20090109
  Serious: Yes (Death, Hospitalization)
  Sender: FDA-Public Use
  Company Number: BE-PFIZER INC-2008036307

PATIENT
  Sex: Male

DRUGS (10)
  1. SUTENT [Suspect]
     Indication: NEOPLASM MALIGNANT
     Route: 048
     Dates: start: 20080418, end: 20080419
  2. SUTENT [Suspect]
     Indication: DISEASE PROGRESSION
  3. EMCONCOR [Concomitant]
     Route: 048
  4. MEDROL [Concomitant]
     Route: 048
  5. MOXON [Concomitant]
     Route: 048
  6. MOLSIDOMINE [Concomitant]
     Route: 048
  7. LIPITOR [Concomitant]
     Route: 048
  8. AMLOR [Concomitant]
     Route: 048
  9. ZANTAC [Concomitant]
     Route: 048
  10. FRAXODI [Concomitant]
     Route: 058

REACTIONS (1)
  - SUBDURAL HAEMORRHAGE [None]
